FAERS Safety Report 24628861 (Version 3)
Quarter: 2024Q4

REPORT INFORMATION
  Report Type: Spontaneous
  Country: US (occurrence: US)
  Receive Date: 20241118
  Receipt Date: 20241216
  Transmission Date: 20250115
  Serious: Yes (Hospitalization)
  Sender: SANOFI AVENTIS
  Company Number: US-SANOFI-02291824

PATIENT
  Age: 41 Year
  Sex: Female
  Weight: 80 kg

DRUGS (11)
  1. CABLIVI [Suspect]
     Active Substance: CAPLACIZUMAB-YHDP
     Indication: Thrombocytopenic purpura
     Dosage: 11 MG, 1X
     Route: 042
     Dates: start: 20241101, end: 20241101
  2. CABLIVI [Suspect]
     Active Substance: CAPLACIZUMAB-YHDP
     Indication: Thrombocytopenic purpura
     Dosage: 11 MG, 1X
     Route: 042
     Dates: start: 20241101, end: 20241101
  3. CABLIVI [Suspect]
     Active Substance: CAPLACIZUMAB-YHDP
     Indication: Thrombocytopenic purpura
     Dosage: 11 MG, 1X
     Route: 042
     Dates: start: 20241101, end: 20241101
  4. CABLIVI [Suspect]
     Active Substance: CAPLACIZUMAB-YHDP
     Indication: Thrombocytopenic purpura
     Dosage: 11 MG, 1X
     Route: 042
     Dates: start: 20241101, end: 20241101
  5. CABLIVI [Suspect]
     Active Substance: CAPLACIZUMAB-YHDP
     Dosage: 11 MG, QD
     Dates: start: 202411
  6. CABLIVI [Suspect]
     Active Substance: CAPLACIZUMAB-YHDP
     Dosage: 11 MG, QD
     Dates: start: 202411
  7. CABLIVI [Suspect]
     Active Substance: CAPLACIZUMAB-YHDP
     Dosage: 11 MG, QD
     Dates: start: 202411
  8. CABLIVI [Suspect]
     Active Substance: CAPLACIZUMAB-YHDP
     Dosage: 11 MG, QD
     Dates: start: 202411
  9. METFORMIN [Concomitant]
     Active Substance: METFORMIN HYDROCHLORIDE
     Indication: Diabetes mellitus
     Dosage: UNK
  10. TRULICITY [Concomitant]
     Active Substance: DULAGLUTIDE
     Indication: Diabetes mellitus
     Dosage: UNK
     Dates: start: 20241021
  11. ATORVASTATIN [Concomitant]
     Active Substance: ATORVASTATIN
     Indication: Dyslipidaemia
     Dosage: UNK

REACTIONS (3)
  - Catheter site haemorrhage [Recovered/Resolved]
  - Platelet count decreased [Recovered/Resolved]
  - Von Willebrand^s factor activity decreased [Recovered/Resolved]

NARRATIVE: CASE EVENT DATE: 20241101
